FAERS Safety Report 10354630 (Version 1)
Quarter: 2014Q3

REPORT INFORMATION
  Report Type: Spontaneous
  Country: US (occurrence: US)
  Receive Date: 20140731
  Receipt Date: 20140731
  Transmission Date: 20150326
  Serious: No
  Sender: FDA-Public Use
  Company Number: US-009507513-1407USA011419

PATIENT
  Age: 35 Year
  Sex: Female
  Weight: 90.7 kg

DRUGS (1)
  1. COPPERTONE SPORT SPF 50 [Suspect]
     Active Substance: AVOBENZONE\HOMOSALATE\OCTISALATE\OCTOCRYLENE\OXYBENZONE
     Indication: PRODUCT USED FOR UNKNOWN INDICATION
     Dosage: UNK, ONCE
     Route: 048
     Dates: start: 20140719

REACTIONS (3)
  - Crying [Unknown]
  - Accidental exposure to product [Unknown]
  - Vomiting [Unknown]

NARRATIVE: CASE EVENT DATE: 20140719
